FAERS Safety Report 24784663 (Version 1)
Quarter: 2024Q4

REPORT INFORMATION
  Report Type: Spontaneous
  Country: US (occurrence: US)
  Receive Date: 20241227
  Receipt Date: 20241227
  Transmission Date: 20250115
  Serious: No
  Sender: CELLTRION
  Company Number: US-CELLTRION INC.-2024US012141

PATIENT

DRUGS (3)
  1. RITUXIMAB [Suspect]
     Active Substance: RITUXIMAB
     Indication: Thrombotic thrombocytopenic purpura
     Dosage: 375 MG/M2 (ON THE SEVENTH DAY OF ADMISSION)
  2. RITUXIMAB [Suspect]
     Active Substance: RITUXIMAB
     Dosage: 375 MG/M2 (INITIAL IMPROVEMENT IN THROMBOCYTOPENIA THAT SIGNIFICANTLY DECLINED WITHIN THREE DAYS)
  3. PREDNISONE [Concomitant]
     Active Substance: PREDNISONE
     Indication: Thrombotic thrombocytopenic purpura
     Dosage: 40 MG
     Route: 048

REACTIONS (2)
  - Intentional product use issue [Unknown]
  - Therapy partial responder [Unknown]
